FAERS Safety Report 5809488-2 (Version None)
Quarter: 2008Q4

REPORT INFORMATION
  Report Type: 
  Country: None (occurrence: None)
  Receive Date: 20080709
  Receipt Date: 20080701
  Transmission Date: 20090506
  Serious: Yes (Other)
  Sender: FDA-Public Use
  Company Number: CHNY2008GB02542

PATIENT
  Age: 35 Year
  Sex: Female

DRUGS (8)
  1. IBUPROFEN [Suspect]
     Dosage: 400 MG, TID
     Dates: start: 20080622, end: 20080623
  2. ONDANSETRON HYDROCHLORIDE [Suspect]
     Dosage: 4 MG, TID
     Dates: start: 20080621, end: 20080623
  3. CYCLIZINE [Suspect]
     Dosage: 50 MG, TID
     Dates: start: 20080621, end: 20080622
  4. FENTANYL-100 [Concomitant]
  5. HEPARIN [Concomitant]
  6. ACETAMINOPHEN [Concomitant]
  7. TRAMADOL HCL [Concomitant]
  8. CIPROFLOXACIN [Concomitant]

REACTIONS (8)
  - DEPRESSED LEVEL OF CONSCIOUSNESS [None]
  - HYPOTENSION [None]
  - MALAISE [None]
  - MUSCULAR WEAKNESS [None]
  - RASH ERYTHEMATOUS [None]
  - RASH GENERALISED [None]
  - SENSATION OF HEAVINESS [None]
  - TACHYCARDIA [None]
